APPROVED DRUG PRODUCT: NITISINONE
Active Ingredient: NITISINONE
Strength: 10MG
Dosage Form/Route: CAPSULE;ORAL
Application: A215908 | Product #003
Applicant: TORRENT PHARMA INC
Approved: Jan 9, 2023 | RLD: No | RS: No | Type: DISCN